FAERS Safety Report 21944488 (Version 1)
Quarter: 2023Q1

REPORT INFORMATION
  Report Type: Report from Study
  Country: GB (occurrence: GB)
  Receive Date: 20230202
  Receipt Date: 20230202
  Transmission Date: 20230418
  Serious: Yes (Death)
  Sender: FDA-Public Use
  Company Number: GB-CELLTRION INC.-2023GB002446

PATIENT

DRUGS (10)
  1. BEVACIZUMAB [Suspect]
     Active Substance: BEVACIZUMAB
     Indication: Hepatocellular carcinoma
     Dosage: 1200 MG
     Dates: start: 20211125
  2. ATEZOLIZUMAB [Suspect]
     Active Substance: ATEZOLIZUMAB
     Indication: Hepatocellular carcinoma
     Dosage: 1200 MG
     Route: 042
     Dates: start: 20211125
  3. CARVEDILOL [Concomitant]
     Active Substance: CARVEDILOL
     Indication: Prophylaxis
     Dosage: UNK, QD
     Dates: start: 20211112, end: 20220110
  4. FOLIC ACID [Concomitant]
     Active Substance: FOLIC ACID
     Dosage: 5 MG, QD (ADDITIONAL INFORMATION ON DRUG: GIVEN FOR MEDICAL HISTORY)
     Dates: start: 20140331
  5. LEVOTHYROXINE [Concomitant]
     Active Substance: LEVOTHYROXINE
     Dosage: UNK, QD (ADDITIONAL INFORMATION ON DRUG: GIVEN FOR MEDICAL HISTORY)
     Dates: start: 20210526, end: 20220107
  6. LEVOTHYROXINE [Concomitant]
     Active Substance: LEVOTHYROXINE
     Dosage: UNK, QD (ADDITIONAL INFORMATION ON DRUG: GIVEN FOR MEDICAL HISTORY)
     Dates: start: 20210107
  7. LEVOTHYROXINE [Concomitant]
     Active Substance: LEVOTHYROXINE
     Dosage: UNK, BID (ADDITIONAL INFORMATION ON DRUG: GIVEN FOR MEDICAL HISTORY)
     Dates: start: 20210526, end: 20220107
  8. LOPERAMIDE [Concomitant]
     Active Substance: LOPERAMIDE
     Dosage: UNK, QD (ADDITIONAL INFORMATION ON DRUG: USED FOR MEDICAL HISTORY)
     Dates: start: 20150106
  9. THIAMINE [Concomitant]
     Active Substance: THIAMINE
     Dosage: UNK, QD (ADDITIONAL INFORMATION ON DRUG: USED FOR MEDICAL HISTORY)
     Dates: start: 20100413
  10. NIACINAMIDE\PYRIDOXINE HYDROCHLORIDE\RIBOFLAVIN\THIAMINE HYDROCHLORIDE [Concomitant]
     Active Substance: NIACINAMIDE\PYRIDOXINE HYDROCHLORIDE\RIBOFLAVIN\THIAMINE HYDROCHLORIDE
     Dosage: UNK, QD (ADDITIONAL INFORMATION ON DRUG: GIVEN FOR MEDICAL HISTORY)
     Dates: start: 20080902

REACTIONS (3)
  - Death [Fatal]
  - Haematuria [Recovered/Resolved]
  - Off label use [Unknown]

NARRATIVE: CASE EVENT DATE: 20211125
